FAERS Safety Report 4637652-7 (Version None)
Quarter: 2005Q2

REPORT INFORMATION
  Report Type: 
  Country: None (occurrence: None)
  Receive Date: 20050418
  Receipt Date: 20050411
  Transmission Date: 20051028
  Serious: Yes (Hospitalization)
  Sender: FDA-Public Use
  Company Number: JP-GLAXOSMITHKLINE-B0377845A

PATIENT
  Age: 45 Year
  Sex: Female
  Weight: 42 kg

DRUGS (8)
  1. PAXIL [Suspect]
     Indication: DEPRESSION
     Dosage: 40MG PER DAY
     Route: 048
     Dates: start: 20041201, end: 20050406
  2. LENDORM [Concomitant]
     Route: 048
  3. ALESION [Concomitant]
     Route: 048
  4. LEXOTAN [Concomitant]
     Route: 048
  5. ACECOL [Concomitant]
     Route: 048
  6. COMELIAN [Concomitant]
     Route: 048
  7. DIOVAN [Concomitant]
     Route: 048
  8. MYSLEE [Concomitant]
     Route: 048

REACTIONS (3)
  - AFFECT LABILITY [None]
  - AUTONOMIC NERVOUS SYSTEM IMBALANCE [None]
  - MUSCULOSKELETAL STIFFNESS [None]
